FAERS Safety Report 19362525 (Version 1)
Quarter: 2021Q2

REPORT INFORMATION
  Report Type: Spontaneous
  Country: US (occurrence: US)
  Receive Date: 20210601
  Receipt Date: 20210601
  Transmission Date: 20210717
  Serious: No
  Sender: FDA-Public Use
  Company Number: US-PFIZER INC-2021235189

PATIENT
  Age: 28 Year
  Sex: Female

DRUGS (2)
  1. CYTOMEL [Suspect]
     Active Substance: LIOTHYRONINE SODIUM
     Dosage: 5 UG (5MCG TABLET UP TO SEVEN TIMES DAILY)
  2. CYTOMEL [Suspect]
     Active Substance: LIOTHYRONINE SODIUM
     Indication: THYROID DISORDER
     Dosage: 5 MCG (TAKES 20 TABLETS IN THE MORNING, 15 TABLETS IN THE AFTERNOON, 15 TABLETS AT BEDTIME)
     Route: 048

REACTIONS (1)
  - Drug ineffective [Unknown]
